FAERS Safety Report 4392216-8 (Version None)
Quarter: 2004Q3

REPORT INFORMATION
  Report Type: 
  Country: None (occurrence: None)
  Receive Date: 20040702
  Receipt Date: 20040623
  Transmission Date: 20050211
  Serious: Yes (Hospitalization)
  Sender: FDA-Public Use
  Company Number: DSA_60427_2004

PATIENT
  Age: 51 Year
  Sex: Female
  Weight: 39.9165 kg

DRUGS (4)
  1. MYSOLINE [Suspect]
     Dosage: 750 MG DAILY PO
     Route: 048
     Dates: end: 20031101
  2. ZONEGRAN [Suspect]
     Indication: EPILEPSY
     Dosage: 300 MG QDAY PO
     Route: 048
     Dates: start: 20030201, end: 20030703
  3. ZOLOFT [Concomitant]
  4. ZYPREXA [Concomitant]

REACTIONS (11)
  - ANGER [None]
  - BELLIGERENCE [None]
  - DEMENTIA [None]
  - DYSARTHRIA [None]
  - EMOTIONAL DISORDER [None]
  - FEELING ABNORMAL [None]
  - FLAT AFFECT [None]
  - HALLUCINATION [None]
  - PARANOIA [None]
  - PSYCHOTIC DISORDER [None]
  - WEIGHT DECREASED [None]
